FAERS Safety Report 6053277-3 (Version None)
Quarter: 2009Q1

REPORT INFORMATION
  Report Type: 
  Country: None (occurrence: None)
  Receive Date: 20090127
  Receipt Date: 20090116
  Transmission Date: 20090719
  Serious: Yes (Hospitalization)
  Sender: FDA-Public Use
  Company Number: A0709955A

PATIENT
  Age: 53 Year
  Sex: Female
  Weight: 109.1 kg

DRUGS (6)
  1. AVANDIA [Suspect]
     Dosage: 4MG PER DAY
     Route: 048
     Dates: start: 20010301, end: 20070729
  2. METFORMIN HCL [Concomitant]
     Dates: start: 19960101, end: 20061201
  3. AMARYL [Concomitant]
     Dates: start: 19960101, end: 20030101
  4. VIOXX [Concomitant]
     Dates: start: 20030101, end: 20040101
  5. PAXIL [Concomitant]
     Dates: start: 20050101, end: 20060101
  6. ZOCOR [Concomitant]
     Dates: start: 20020101

REACTIONS (5)
  - CARDIAC FAILURE CONGESTIVE [None]
  - CORONARY ARTERY DISEASE [None]
  - MYOCARDIAL INFARCTION [None]
  - PAIN [None]
  - RENAL FAILURE [None]
